FAERS Safety Report 4497862-9 (Version None)
Quarter: 2004Q4

REPORT INFORMATION
  Report Type: 
  Country: None (occurrence: None)
  Receive Date: 20041104
  Receipt Date: 20041025
  Transmission Date: 20050328
  Serious: Yes (Congenital Anomaly)
  Sender: FDA-Public Use
  Company Number: CO-2004-034100

PATIENT
  Age: 1 Day
  Sex: Male
  Weight: 3 kg

DRUGS (1)
  1. MIRENA [Suspect]
     Dosage: CONT, INTRA-UTERINE
     Route: 064
     Dates: end: 20031201

REACTIONS (2)
  - DRUG EXPOSURE DURING PREGNANCY [None]
  - HYPOSPADIAS [None]
